FAERS Safety Report 20264291 (Version 1)
Quarter: 2021Q4

REPORT INFORMATION
  Report Type: Spontaneous
  Country: US (occurrence: None)
  Receive Date: 20211230
  Receipt Date: 20211230
  Transmission Date: 20220303
  Serious: Yes (Hospitalization)
  Sender: FDA-Public Use
  Company Number: None

PATIENT
  Sex: Male
  Weight: 65.31 kg

DRUGS (3)
  1. FLUOROURACIL [Suspect]
     Active Substance: FLUOROURACIL
  2. CAMPTOSAR [Suspect]
     Active Substance: IRINOTECAN HYDROCHLORIDE
     Dates: end: 20211122
  3. ELOXATIN [Suspect]
     Active Substance: OXALIPLATIN
     Dates: end: 20211122

REACTIONS (4)
  - Nausea [None]
  - Hypokalaemia [None]
  - Hypomagnesaemia [None]
  - Dehydration [None]

NARRATIVE: CASE EVENT DATE: 20211206
